FAERS Safety Report 8814147 (Version 1)
Quarter: 2012Q4

REPORT INFORMATION
  Report Type: Spontaneous
  Country: US (occurrence: None)
  Receive Date: 20120926
  Receipt Date: 20120926
  Transmission Date: 20130627
  Serious: Yes (Hospitalization)
  Sender: FDA-Public Use
  Company Number: None

PATIENT
  Age: 62 Year
  Sex: Male
  Weight: 86.18 kg

DRUGS (1)
  1. OLANZAPINE [Suspect]
     Indication: DELUSION
     Route: 048
     Dates: start: 20120713, end: 20120921

REACTIONS (8)
  - Thirst [None]
  - Mood altered [None]
  - Depression [None]
  - Product substitution issue [None]
  - Hyperhidrosis [None]
  - Nausea [None]
  - Dyspnoea [None]
  - Withdrawal syndrome [None]
